FAERS Safety Report 14298253 (Version 6)
Quarter: 2018Q1

REPORT INFORMATION
  Report Type: Spontaneous
  Country: KR (occurrence: KR)
  Receive Date: 20171218
  Receipt Date: 20180212
  Transmission Date: 20180509
  Serious: Yes (Other)
  Sender: FDA-Public Use
  Company Number: KR-PFIZER INC-2017535553

PATIENT
  Age: 38 Year
  Sex: Female

DRUGS (6)
  1. VINCRISTINE SULFATE. [Suspect]
     Active Substance: VINCRISTINE SULFATE
     Indication: SQUAMOUS CELL CARCINOMA OF THE CERVIX
     Dosage: 1 MG/M2, CYCLIC (AT 3-WEEK INTERVALS, 3 CYCLES)
     Dates: start: 201207, end: 201208
  2. CISPLATIN. [Suspect]
     Active Substance: CISPLATIN
     Indication: SQUAMOUS CELL CARCINOMA OF THE CERVIX
     Dosage: 75 MG/M2, CYCLIC (AT 3-WEEK INTERVALS, 3 CYCLES)
     Dates: start: 201207, end: 201208
  3. MITOMYCIN C [Suspect]
     Active Substance: MITOMYCIN
     Indication: SQUAMOUS CELL CARCINOMA OF THE CERVIX
     Dosage: 10 MG/M2, CYCLIC (AT 3-WEEK INTERVALS, 3 CYCLES)
     Dates: start: 201207, end: 201208
  4. CISPLATIN. [Suspect]
     Active Substance: CISPLATIN
     Dosage: 75 MG/M2, CYCLIC (AT 3-WEEK INTERVALS, 2 CYCLES)
     Dates: start: 201210, end: 201211
  5. MITOMYCIN C [Suspect]
     Active Substance: MITOMYCIN
     Dosage: 10 MG/M2, CYCLIC (AT 3-WEEK INTERVALS, 2 CYCLES)
     Dates: start: 201210, end: 201211
  6. VINCRISTINE SULFATE. [Suspect]
     Active Substance: VINCRISTINE SULFATE
     Dosage: 1 MG/M2, CYCLIC (AT 3-WEEK INTERVALS, 2 CYCLES)
     Dates: start: 201210, end: 201211

REACTIONS (2)
  - Haemolytic uraemic syndrome [Unknown]
  - Product use in unapproved indication [Unknown]

NARRATIVE: CASE EVENT DATE: 201207
